FAERS Safety Report 8301657-5 (Version None)
Quarter: 2012Q2

REPORT INFORMATION
  Report Type: 
  Country: None (occurrence: None)
  Receive Date: 20120420
  Receipt Date: 20120418
  Transmission Date: 20120825
  Serious: Yes (Death, Hospitalization)
  Sender: FDA-Public Use
  Company Number: NL-GENZYME-CLOF-1002017

PATIENT
  Sex: Female
  Weight: 58.8 kg

DRUGS (94)
  1. METHOTREXATE [Suspect]
     Indication: ACUTE LYMPHOCYTIC LEUKAEMIA
     Dosage: 15 MG, QD
     Route: 037
     Dates: start: 20100608, end: 20100608
  2. METHOTREXATE [Suspect]
     Dosage: 17.5 MG, QD ON DAY 7, 14, 21
     Route: 048
     Dates: start: 20110303, end: 20110330
  3. METHOTREXATE [Suspect]
     Dosage: 15 MG, QD ON DAY 7, 14, 21
     Route: 048
     Dates: start: 20110915, end: 20111013
  4. METHOTREXATE [Suspect]
     Dosage: 15 MG, QD (DAYS 1, 8 AND 15)
     Route: 048
     Dates: start: 20111014, end: 20111120
  5. MERCAPTOPURINE [Suspect]
     Dosage: 50 MG, QD, DAYS 0-27
     Route: 048
     Dates: start: 20110303, end: 20110330
  6. MERCAPTOPURINE [Suspect]
     Dosage: 50 MG, QD, DAYS 0-27
     Route: 048
     Dates: start: 20110818, end: 20110914
  7. PREDNISONE TAB [Suspect]
     Indication: ACUTE LYMPHOCYTIC LEUKAEMIA
     Dosage: 50 MG, QD
     Route: 048
     Dates: start: 20100511, end: 20100517
  8. PREDNISONE TAB [Suspect]
     Dosage: 35 MG, QD
     Route: 048
     Dates: start: 20100518, end: 20100614
  9. PREDNISONE TAB [Suspect]
     Dosage: 55 MG, QD, DAYS 0-6
     Route: 048
     Dates: start: 20110203, end: 20110302
  10. PREDNISONE TAB [Suspect]
     Dosage: 55 MG, QD, DAYS 0-6
     Route: 048
     Dates: start: 20110303, end: 20110330
  11. PREDNISONE TAB [Suspect]
     Dosage: 55 MG, QD, DAYS 0-6
     Route: 048
     Dates: start: 20110526, end: 20110622
  12. PREDNISONE TAB [Suspect]
     Dosage: 55 MG, QD, DAYS 0-6
     Route: 048
     Dates: start: 20110721, end: 20110817
  13. PREDNISONE TAB [Suspect]
     Dosage: 55 MG, QD, DAYS 0-6
     Route: 048
     Dates: start: 20110818, end: 20110914
  14. VINCRISTINE [Suspect]
     Dosage: 2 MG, QD, DAY 1 OF EVERY MONTH
     Route: 042
     Dates: start: 20101209, end: 20101209
  15. VINCRISTINE [Suspect]
     Dosage: 2 MG, QD, DAY 1 OF EVERY MONTH
     Route: 042
     Dates: start: 20110303, end: 20110303
  16. VINCRISTINE [Suspect]
     Dosage: 2 MG, QD, DAY 1 OF EVERY MONTH
     Route: 042
     Dates: start: 20110915, end: 20110915
  17. CYTARABINE [Suspect]
     Indication: ACUTE LYMPHOCYTIC LEUKAEMIA
     Dosage: 310 MG, QD
     Route: 042
     Dates: start: 20100620, end: 20100620
  18. CYTARABINE [Suspect]
     Dosage: 80 MG, QD
     Route: 037
     Dates: start: 20101118, end: 20101118
  19. METHOTREXATE [Suspect]
     Dosage: 17.5 MG, QD ON DAY 7, 14, 21
     Route: 048
     Dates: start: 20101209, end: 20110105
  20. METHOTREXATE [Suspect]
     Dosage: 20 MG, QD ON DAY 7, 14, 21
     Route: 048
     Dates: start: 20110331, end: 20110427
  21. MERCAPTOPURINE [Suspect]
     Dosage: 90 MG, QD, DAYS 0-27
     Route: 048
     Dates: start: 20110106, end: 20110202
  22. MERCAPTOPURINE [Suspect]
     Dosage: 50 MG, QD, DAYS 0-27
     Route: 048
     Dates: start: 20110331, end: 20110427
  23. PEG-ASPARAGINASE [Suspect]
     Indication: ACUTE LYMPHOCYTIC LEUKAEMIA
     Dosage: 1575 IU, QD
     Route: 042
     Dates: start: 20100925, end: 20100925
  24. DOXORUBICIN HCL [Suspect]
     Dosage: 62 MG, QD
     Route: 042
     Dates: start: 20100818, end: 20100818
  25. PREDNISONE TAB [Suspect]
     Dosage: 55 MG, QD, DAYS 0-6
     Route: 048
     Dates: start: 20110106, end: 20110202
  26. PREDNISONE TAB [Suspect]
     Dosage: 55 MG, QD, DAYS 0-6
     Route: 048
     Dates: start: 20110331, end: 20110427
  27. PREDNISONE TAB [Suspect]
     Dosage: 55 MG, QD, DAYS 0-6
     Route: 048
     Dates: start: 20110428, end: 20110525
  28. VINCRISTINE [Suspect]
     Dosage: 1 MG, QD
     Route: 042
     Dates: start: 20100819, end: 20100819
  29. VINCRISTINE [Suspect]
     Dosage: 2 MG, QD, DAY 1 OF EVERY MONTH
     Route: 042
     Dates: start: 20110203, end: 20110203
  30. METHOTREXATE [Suspect]
     Dosage: 775 MG, QD
     Route: 042
     Dates: start: 20100623, end: 20100623
  31. MERCAPTOPURINE [Suspect]
     Dosage: 75 MG, QD, DAYS 0-27
     Route: 048
     Dates: start: 20101209, end: 20110105
  32. ETOPOSIDE [Suspect]
     Indication: ACUTE LYMPHOCYTIC LEUKAEMIA
     Dosage: 188 MG, QD
     Route: 042
     Dates: start: 20100620, end: 20100620
  33. PREDNISONE TAB [Suspect]
     Dosage: 55 MG, QD, DAYS 0-6
     Route: 048
     Dates: start: 20110623, end: 20110720
  34. VINCRISTINE [Suspect]
     Indication: ACUTE LYMPHOCYTIC LEUKAEMIA
     Dosage: 1 MG, QD
     Route: 042
     Dates: start: 20100518, end: 20100518
  35. VINCRISTINE [Suspect]
     Dosage: 1 MG, QD
     Route: 042
     Dates: start: 20100525, end: 20100525
  36. VINCRISTINE [Suspect]
     Dosage: 2 MG, QD, DAY 1 OF EVERY MONTH
     Route: 042
     Dates: start: 20101111, end: 20101111
  37. VINCRISTINE [Suspect]
     Dosage: 2 MG, QD, DAY 1 OF EVERY MONTH
     Route: 042
     Dates: start: 20110721, end: 20110721
  38. VINCRISTINE [Suspect]
     Dosage: 2 MG, QD, DAY 1 OF EVERY MONTH
     Route: 042
     Dates: start: 20110818, end: 20110818
  39. CYTARABINE [Suspect]
     Dosage: 80 MG, QD
     Route: 037
     Dates: start: 20100723, end: 20100723
  40. CYTARABINE [Suspect]
     Dosage: 3140 MG, QD
     Route: 065
     Dates: start: 20100923, end: 20100924
  41. EVOLTRA [Suspect]
     Dosage: 33 MG, QDX5
     Route: 042
     Dates: start: 20100720, end: 20100724
  42. METHOTREXATE [Suspect]
     Dosage: 20 MG, QD ON DAY 7, 14, 21
     Route: 048
     Dates: start: 20110623, end: 20110720
  43. METHOTREXATE [Suspect]
     Dosage: 20 MG, QD ON DAY 7, 14, 21
     Route: 048
     Dates: start: 20110721, end: 20110817
  44. MERCAPTOPURINE [Suspect]
     Dosage: 50 MG, QD, DAYS 0-27
     Route: 048
     Dates: start: 20110526, end: 20110622
  45. MERCAPTOPURINE [Suspect]
     Dosage: 100 MG, QD (DAYS 1-28)
     Route: 048
     Dates: start: 20111014, end: 20111120
  46. MERCAPTOPURINE [Suspect]
     Dosage: 50 MG, ONCE
     Route: 048
     Dates: start: 20120112, end: 20120112
  47. DEXAMETHASONE [Suspect]
     Indication: ACUTE LYMPHOCYTIC LEUKAEMIA
     Dosage: 4 MG, QD
     Route: 037
     Dates: start: 20100608, end: 20100608
  48. DOXORUBICIN HCL [Suspect]
     Dosage: 62 MG, QD
     Route: 042
     Dates: start: 20100826, end: 20100826
  49. DOXORUBICIN HCL [Suspect]
     Dosage: 62 MG, QD
     Route: 042
     Dates: start: 20100902, end: 20100902
  50. VINCRISTINE [Suspect]
     Dosage: 2 MG, QD, DAY 1 OF EVERY MONTH
     Route: 042
     Dates: start: 20110331, end: 20110331
  51. VINCRISTINE [Suspect]
     Dosage: 2 MG, QD, DAY 1 OF EVERY MONTH
     Route: 042
     Dates: start: 20110428, end: 20110428
  52. VINCRISTINE [Suspect]
     Dosage: 2 MG, QD, DAY 1 OF EVERY MONTH
     Route: 042
     Dates: start: 20110526, end: 20110526
  53. VINCRISTINE [Suspect]
     Dosage: 2 MG, QD, DAY 1 OF EVERY MONTH
     Route: 042
     Dates: start: 20110623, end: 20110623
  54. CYTARABINE [Suspect]
     Dosage: 80 MG, QD
     Route: 037
     Dates: start: 20100826, end: 20100826
  55. CYTARABINE [Suspect]
     Dosage: 80 MG, QD
     Route: 037
     Dates: start: 20101209, end: 20101209
  56. CYTARABINE [Suspect]
     Dosage: 80 MG, QD
     Route: 037
     Dates: start: 20110203, end: 20110203
  57. METHOTREXATE [Suspect]
     Dosage: 20 MG, QD (DAYS 1, 8 AND 15)
     Route: 048
     Dates: start: 20111121
  58. METHOTREXATE [Suspect]
     Dosage: 15 MG, ONCE
     Route: 048
     Dates: start: 20120112, end: 20120112
  59. MERCAPTOPURINE [Suspect]
     Indication: ACUTE LYMPHOCYTIC LEUKAEMIA
     Dosage: 100 MG, QD, DAYS 0-27
     Route: 048
     Dates: start: 20101111, end: 20101208
  60. MERCAPTOPURINE [Suspect]
     Dosage: 50 MG, QD, DAYS 0-27
     Route: 048
     Dates: start: 20110623, end: 20110720
  61. DEXAMETHASONE [Suspect]
     Dosage: 4 MG, QD
     Route: 037
     Dates: start: 20100730, end: 20100730
  62. DEXAMETHASONE [Suspect]
     Dosage: 4 MG, QD
     Route: 037
     Dates: start: 20100826, end: 20100826
  63. DEXAMETHASONE [Suspect]
     Dosage: 4 MG, QD
     Route: 037
     Dates: start: 20100902, end: 20100902
  64. DEXAMETHASONE [Suspect]
     Dosage: 4 MG, QD
     Route: 037
     Dates: start: 20110203, end: 20110203
  65. PREDNISONE TAB [Suspect]
     Dosage: 55 MG, QD, DAYS 0-6
     Route: 048
     Dates: start: 20101209, end: 20110105
  66. PREDNISONE TAB [Suspect]
     Dosage: 55 MG, QD, DAYS 0-6
     Route: 048
     Dates: start: 20110915, end: 20111013
  67. METHOTREXATE [Suspect]
     Dosage: 25 MG, QD ON DAY 7, 14, 21
     Route: 048
     Dates: start: 20101111, end: 20101208
  68. METHOTREXATE [Suspect]
     Dosage: 17.5 MG, QD ON DAY 7, 14, 21
     Route: 048
     Dates: start: 20110106, end: 20110202
  69. MERCAPTOPURINE [Suspect]
     Dosage: 100 MG, QD (DAYS 1-28)
     Route: 048
     Dates: start: 20111121
  70. DEXAMETHASONE [Suspect]
     Dosage: 4 MG, QD
     Route: 037
     Dates: start: 20100723, end: 20100723
  71. DOXORUBICIN HCL [Suspect]
     Dosage: 66 MG, QD
     Route: 042
     Dates: start: 20100601, end: 20100601
  72. VINCRISTINE [Suspect]
     Dosage: 1 MG, QD
     Route: 042
     Dates: start: 20100902, end: 20100902
  73. CYTARABINE [Suspect]
     Dosage: 80 MG, QD
     Route: 037
     Dates: start: 20100902, end: 20100902
  74. EVOLTRA [Suspect]
     Indication: ACUTE LYMPHOCYTIC LEUKAEMIA
     Dosage: 33 MG, QDX5
     Route: 042
     Dates: start: 20100511, end: 20100515
  75. METHOTREXATE [Suspect]
     Dosage: 775 MG, QD
     Route: 042
     Dates: start: 20100630, end: 20100630
  76. METHOTREXATE [Suspect]
     Dosage: 20 MG, QD ON DAY 7, 14, 21
     Route: 048
     Dates: start: 20110428, end: 20110525
  77. METHOTREXATE [Suspect]
     Dosage: 20 MG, QD ON DAY 7, 14, 21
     Route: 048
     Dates: start: 20110818, end: 20110914
  78. MERCAPTOPURINE [Suspect]
     Dosage: 50 MG, QD, DAYS 0-27
     Route: 048
     Dates: start: 20110203, end: 20110302
  79. ETOPOSIDE [Suspect]
     Dosage: 188 MG, QD
     Route: 042
     Dates: start: 20100627, end: 20100627
  80. DEXAMETHASONE [Suspect]
     Dosage: 4 MG, QD
     Route: 037
     Dates: start: 20101118, end: 20101118
  81. DEXAMETHASONE [Suspect]
     Dosage: 4 MG, QD
     Route: 037
     Dates: start: 20101209, end: 20101209
  82. VINCRISTINE [Suspect]
     Dosage: 1 MG, QD
     Route: 042
     Dates: start: 20100601, end: 20100601
  83. VINCRISTINE [Suspect]
     Dosage: 1 MG, QD
     Route: 042
     Dates: start: 20100826, end: 20100826
  84. VINCRISTINE [Suspect]
     Dosage: 2 MG, QD, DAY 1 OF EVERY MONTH
     Route: 042
     Dates: start: 20110106, end: 20110106
  85. CYTARABINE [Suspect]
     Dosage: 80 MG, QD
     Route: 037
     Dates: start: 20100730, end: 20100730
  86. METHOTREXATE [Suspect]
     Dosage: 20 MG, QD ON DAY 7, 14, 21
     Route: 048
     Dates: start: 20110526, end: 20110622
  87. MERCAPTOPURINE [Suspect]
     Dosage: 50 MG, QD, DAYS 0-27
     Route: 048
     Dates: start: 20110428, end: 20110525
  88. MERCAPTOPURINE [Suspect]
     Dosage: 50 MG, QD, DAYS 0-27
     Route: 048
     Dates: start: 20110721, end: 20110817
  89. MERCAPTOPURINE [Suspect]
     Dosage: 50 MG, QD, DAYS 0-27
     Route: 048
     Dates: start: 20110915, end: 20111013
  90. PEG-ASPARAGINASE [Suspect]
     Dosage: 1575 IU, QD
     Route: 042
     Dates: start: 20101010, end: 20101010
  91. DOXORUBICIN HCL [Suspect]
     Indication: ACUTE LYMPHOCYTIC LEUKAEMIA
     Dosage: 66 MG, QD
     Route: 042
     Dates: start: 20100525, end: 20100525
  92. PREDNISONE TAB [Suspect]
     Dosage: 60 MG, QD
     Route: 048
     Dates: start: 20100819, end: 20100916
  93. PREDNISONE TAB [Suspect]
     Dosage: 55 MG, QD, DAYS 0-6
     Route: 048
     Dates: start: 20101111, end: 20101208
  94. CYTARABINE [Suspect]
     Dosage: 310 MG, QD
     Route: 042
     Dates: start: 20100627, end: 20100627

REACTIONS (2)
  - PYREXIA [None]
  - POST TRANSPLANT LYMPHOPROLIFERATIVE DISORDER [None]
